FAERS Safety Report 23047721 (Version 3)
Quarter: 2024Q1

REPORT INFORMATION
  Report Type: Report from Study
  Country: US (occurrence: US)
  Receive Date: 20231010
  Receipt Date: 20240123
  Transmission Date: 20240410
  Serious: Yes (Hospitalization, Other)
  Sender: FDA-Public Use
  Company Number: US-ABBVIE-5439750

PATIENT
  Sex: Female
  Weight: 55 kg

DRUGS (1)
  1. SKYRIZI [Suspect]
     Active Substance: RISANKIZUMAB-RZAA
     Indication: Crohn^s disease
     Route: 042
     Dates: start: 20230919, end: 20231129

REACTIONS (5)
  - Abdominal pain upper [Recovered/Resolved]
  - Abdominal adhesions [Unknown]
  - Gastrointestinal obstruction [Unknown]
  - Post procedural complication [Recovered/Resolved]
  - Colectomy [Unknown]

NARRATIVE: CASE EVENT DATE: 20230101
